FAERS Safety Report 4622365-8 (Version None)
Quarter: 2005Q1

REPORT INFORMATION
  Report Type: 
  Country: None (occurrence: None)
  Receive Date: 20050328
  Receipt Date: 20050317
  Transmission Date: 20050727
  Serious: Yes (Death)
  Sender: FDA-Public Use
  Company Number: 2005040038

PATIENT
  Age: 58 Year
  Sex: Female

DRUGS (7)
  1. AROMASIN [Suspect]
     Indication: BREAST CANCER
     Dosage: 25 MG ORAL
     Route: 048
     Dates: start: 20041203, end: 20050223
  2. ANASTROZOLE [Concomitant]
  3. MORPHINE SULFATE [Concomitant]
  4. KETOPROFEN [Concomitant]
  5. PYRIDOXAL [Concomitant]
  6. CAPECITABINE [Concomitant]
  7. ANASTRAZOLE [Concomitant]

REACTIONS (3)
  - CARDIAC ARREST [None]
  - COUGH [None]
  - DYSPNOEA [None]
